FAERS Safety Report 22187179 (Version 2)
Quarter: 2023Q2

REPORT INFORMATION
  Report Type: Spontaneous
  Country: US (occurrence: US)
  Receive Date: 20230407
  Receipt Date: 20230605
  Transmission Date: 20230721
  Serious: No
  Sender: FDA-Public Use
  Company Number: US-PFIZER INC-PV202200082510

PATIENT
  Age: 66 Year
  Sex: Female

DRUGS (1)
  1. RUXIENCE [Suspect]
     Active Substance: RITUXIMAB-PVVR
     Dosage: 690 MG, EVERY 3 WEEKS (FREQUENCY: Q 21 DAYS)

REACTIONS (3)
  - Off label use [Unknown]
  - Product prescribing error [Unknown]
  - Anxiety [Unknown]
